FAERS Safety Report 11426271 (Version 1)
Quarter: 2015Q3

REPORT INFORMATION
  Report Type: Spontaneous
  Country: US (occurrence: US)
  Receive Date: 20150821
  Receipt Date: 20150821
  Transmission Date: 20151125
  Serious: No
  Sender: FDA-Public Use
  Company Number: US-ELI_LILLY_AND_COMPANY-US201305003073

PATIENT
  Sex: Female
  Weight: 288 kg

DRUGS (4)
  1. COUMADIN [Concomitant]
     Active Substance: WARFARIN SODIUM
  2. ADCIRCA [Suspect]
     Active Substance: TADALAFIL
  3. TYVASO [Concomitant]
     Active Substance: TREPROSTINIL
     Indication: PULMONARY ARTERIAL HYPERTENSION
     Dosage: UNK
     Route: 055
     Dates: start: 20130422
  4. TRACLEER [Concomitant]
     Active Substance: BOSENTAN

REACTIONS (4)
  - Rash [Recovered/Resolved]
  - Cough [Recovering/Resolving]
  - Neck pain [Not Recovered/Not Resolved]
  - Epistaxis [Not Recovered/Not Resolved]
